FAERS Safety Report 11816534 (Version 4)
Quarter: 2016Q2

REPORT INFORMATION
  Report Type: Report from Study
  Country: US (occurrence: US)
  Receive Date: 20151210
  Receipt Date: 20160405
  Transmission Date: 20160815
  Serious: No
  Sender: FDA-Public Use
  Company Number: US-AMGEN-USASL2015128912

PATIENT
  Age: 61 Year
  Sex: Female

DRUGS (2)
  1. LEFLUNOMIDE. [Concomitant]
     Active Substance: LEFLUNOMIDE
     Dosage: UNK
     Dates: start: 2016
  2. ENBREL [Suspect]
     Active Substance: ETANERCEPT
     Indication: RHEUMATOID ARTHRITIS
     Dosage: 50 MG, WEEKLY
     Route: 065
     Dates: start: 20150327

REACTIONS (16)
  - Arthralgia [Not Recovered/Not Resolved]
  - Drug effect incomplete [Unknown]
  - Arthropathy [Not Recovered/Not Resolved]
  - Drug dose omission [Unknown]
  - Muscle tightness [Recovering/Resolving]
  - Condition aggravated [Not Recovered/Not Resolved]
  - Dysphonia [Unknown]
  - Joint lock [Unknown]
  - Joint swelling [Recovered/Resolved]
  - Joint warmth [Not Recovered/Not Resolved]
  - Musculoskeletal disorder [Unknown]
  - Pain [Not Recovered/Not Resolved]
  - Laryngitis [Unknown]
  - Mobility decreased [Unknown]
  - Myalgia [Recovering/Resolving]
  - Gait disturbance [Unknown]

NARRATIVE: CASE EVENT DATE: 201511
